FAERS Safety Report 4411459-8 (Version None)
Quarter: 2004Q2

REPORT INFORMATION
  Report Type: 
  Country: None (occurrence: None)
  Receive Date: 20040630
  Receipt Date: 20040525
  Transmission Date: 20050107
  Serious: No
  Sender: FDA-Public Use
  Company Number: 04P-163-0261871-00

PATIENT
  Age: 58 Year
  Sex: Female
  Weight: 86.1834 kg

DRUGS (6)
  1. HUMIRA [Suspect]
     Indication: PSORIATIC ARTHROPATHY
     Dosage: 40 MG, 1 IN 2 WK, SUBCUTANEOUS
     Route: 058
     Dates: start: 20040518
  2. LEVOTHYROXINE SODIUM [Concomitant]
  3. LANSOPRAZOLE [Concomitant]
  4. CONJUGATED ESTROGEN [Concomitant]
  5. CITALOPRAM HYDROBROMIDE [Concomitant]
  6. UNKNOWN [Concomitant]

REACTIONS (2)
  - INJECTION SITE BURNING [None]
  - INJECTION SITE COLDNESS [None]
